FAERS Safety Report 12268684 (Version 2)
Quarter: 2016Q2

REPORT INFORMATION
  Report Type: Spontaneous
  Country: US (occurrence: US)
  Receive Date: 20160414
  Receipt Date: 20160428
  Transmission Date: 20160815
  Serious: Yes (Death, Hospitalization, Disabling, Other)
  Sender: FDA-Public Use
  Company Number: US-009507513-1604USA008745

PATIENT
  Sex: Male
  Weight: 154.65 kg

DRUGS (3)
  1. BYETTA [Suspect]
     Active Substance: EXENATIDE
     Dosage: 5 MICROGRAM, BID
     Dates: start: 20060705, end: 20060914
  2. JANUVIA [Suspect]
     Active Substance: SITAGLIPTIN PHOSPHATE
     Indication: TYPE 2 DIABETES MELLITUS
     Dosage: 100 MG, QD
     Route: 048
     Dates: start: 20081224, end: 20100725
  3. BYETTA [Suspect]
     Active Substance: EXENATIDE
     Dosage: 10 MICROGRAM, BID
     Dates: start: 20060915, end: 20081224

REACTIONS (27)
  - Pancreatic carcinoma [Not Recovered/Not Resolved]
  - Death [Fatal]
  - Chronic kidney disease [Not Recovered/Not Resolved]
  - Haemolytic anaemia [Unknown]
  - Syncope [Unknown]
  - Dizziness [Unknown]
  - Oedema peripheral [Unknown]
  - Pruritus generalised [Unknown]
  - Blood glucose increased [Unknown]
  - Diabetic eye disease [Unknown]
  - Pulmonary mass [Unknown]
  - Type V hyperlipidaemia [Unknown]
  - Lymphadenopathy [Unknown]
  - Hypertension [Unknown]
  - Arthritis [Unknown]
  - Renal failure [Unknown]
  - Neuropathy peripheral [Unknown]
  - Increased tendency to bruise [Unknown]
  - Bile duct stent insertion [Unknown]
  - Splenomegaly [Unknown]
  - Gout [Unknown]
  - Adverse drug reaction [Unknown]
  - Acute myocardial infarction [Unknown]
  - Hepatic steatosis [Unknown]
  - Excoriation [Unknown]
  - Rectal haemorrhage [Unknown]
  - Wound dehiscence [Unknown]

NARRATIVE: CASE EVENT DATE: 201401
